FAERS Safety Report 21403653 (Version 1)
Quarter: 2022Q4

REPORT INFORMATION
  Report Type: Spontaneous
  Country: KR (occurrence: KR)
  Receive Date: 20221003
  Receipt Date: 20221003
  Transmission Date: 20230112
  Serious: Yes (Death, Other)
  Sender: FDA-Public Use
  Company Number: KR-009507513-2209KOR010628

PATIENT
  Age: 28 Year
  Sex: Female

DRUGS (1)
  1. PREVYMIS [Suspect]
     Active Substance: LETERMOVIR
     Dosage: 480 MILLIGRAM; UNK
     Dates: start: 20210125

REACTIONS (4)
  - Graft versus host disease in gastrointestinal tract [Fatal]
  - Cytomegalovirus colitis [Unknown]
  - Cytomegalovirus gastritis [Unknown]
  - Small intestinal perforation [Unknown]

NARRATIVE: CASE EVENT DATE: 20210822
